FAERS Safety Report 7533857-6 (Version None)
Quarter: 2011Q2

REPORT INFORMATION
  Report Type: 
  Country: None (occurrence: None)
  Receive Date: 20110608
  Receipt Date: 20110525
  Transmission Date: 20111010
  Serious: Yes (Hospitalization)
  Sender: FDA-Public Use
  Company Number: TW-GENENTECH-317561

PATIENT
  Sex: Female

DRUGS (5)
  1. PREDNISOLONE [Concomitant]
     Indication: PRODUCT USED FOR UNKNOWN INDICATION
     Dosage: UNK
     Dates: start: 20110422, end: 20110427
  2. ERYTHROMYCIN [Concomitant]
     Indication: PRODUCT USED FOR UNKNOWN INDICATION
     Dosage: UNK
     Dates: start: 20110425
  3. SULBACTAM [Concomitant]
     Indication: PRODUCT USED FOR UNKNOWN INDICATION
     Dosage: UNK
     Dates: start: 20110422, end: 20110427
  4. XOLAIR [Suspect]
     Indication: ASTHMA
     Dosage: 150 MG, 1/MONTH
     Route: 058
     Dates: start: 20110325, end: 20110422
  5. PIPERACILLIN [Concomitant]
     Indication: PRODUCT USED FOR UNKNOWN INDICATION
     Dosage: UNK
     Dates: start: 20110422, end: 20110427

REACTIONS (3)
  - DIFFUSE PANBRONCHIOLITIS [None]
  - PNEUMONIA [None]
  - PULMONARY TUBERCULOSIS [None]
